FAERS Safety Report 4788435-9 (Version None)
Quarter: 2005Q3

REPORT INFORMATION
  Report Type: 
  Country: None (occurrence: None)
  Receive Date: 20050921
  Receipt Date: 20050504
  Transmission Date: 20060218
  Serious: Yes (Other)
  Sender: FDA-Public Use
  Company Number: 2005072030

PATIENT
  Age: 62 Year
  Sex: Male
  Weight: 65.7716 kg

DRUGS (11)
  1. DILANTIN [Suspect]
     Indication: ILL-DEFINED DISORDER
  2. HYDROCORTISONE SODIUM SUCCINATE [Concomitant]
  3. OXALIPLATIN [Concomitant]
  4. FLUOROURACIL [Concomitant]
  5. LEUCOVORIN CALCIUM [Concomitant]
  6. IRINOTECAN HCL [Concomitant]
  7. DEXAMETHASONE [Concomitant]
  8. DOLASETRON MESILATE [Concomitant]
  9. ATROPINE [Concomitant]
  10. PALONOSETRON [Concomitant]
  11. CEFAZOLIN [Concomitant]

REACTIONS (1)
  - STEVENS-JOHNSON SYNDROME [None]
